FAERS Safety Report 16850169 (Version 2)
Quarter: 2019Q4

REPORT INFORMATION
  Report Type: Spontaneous
  Country: JP (occurrence: JP)
  Receive Date: 20190925
  Receipt Date: 20191025
  Transmission Date: 20200122
  Serious: Yes (Hospitalization)
  Sender: FDA-Public Use
  Company Number: JP-MALLINCKRODT-T201906511

PATIENT
  Age: 57 Year
  Sex: Male
  Weight: 70 kg

DRUGS (6)
  1. ULTIVA [Suspect]
     Active Substance: REMIFENTANIL HYDROCHLORIDE
     Indication: MAINTENANCE OF ANAESTHESIA
  2. OFIRMEV [Suspect]
     Active Substance: ACETAMINOPHEN
     Indication: PROCEDURAL PAIN
     Dosage: 1000 MILLIGRAM, QD
     Route: 042
     Dates: start: 20190829
  3. FENTANYL CITRATE. [Suspect]
     Active Substance: FENTANYL CITRATE
     Indication: PROCEDURAL PAIN
     Dosage: 0.1 MILLIGRAM, QD
     Route: 042
     Dates: start: 20190829, end: 20190829
  4. PROPOFOL. [Suspect]
     Active Substance: PROPOFOL
     Indication: SEDATION
     Dosage: 1169 MILLIGRAM, QD
     Route: 042
     Dates: start: 20190829
  5. ESLAX [Concomitant]
     Active Substance: ROCURONIUM BROMIDE
     Indication: PRODUCT USED FOR UNKNOWN INDICATION
     Dosage: 110 MILLIGRAM, QD
     Route: 042
  6. ULTIVA [Suspect]
     Active Substance: REMIFENTANIL HYDROCHLORIDE
     Indication: INDUCTION OF ANAESTHESIA
     Dosage: 3 MILLIGRAM, QD
     Route: 042
     Dates: start: 20190829, end: 20190829

REACTIONS (1)
  - Pancreatitis acute [Recovering/Resolving]

NARRATIVE: CASE EVENT DATE: 20190829
